FAERS Safety Report 23058748 (Version 2)
Quarter: 2023Q4

REPORT INFORMATION
  Report Type: Report from Study
  Country: US (occurrence: US)
  Receive Date: 20231012
  Receipt Date: 20231211
  Transmission Date: 20240110
  Serious: Yes (Other)
  Sender: FDA-Public Use
  Company Number: US-ASTELLAS-2023US030550

PATIENT
  Sex: Male

DRUGS (4)
  1. ENZALUTAMIDE [Suspect]
     Active Substance: ENZALUTAMIDE
     Indication: Androgen therapy
     Route: 065
     Dates: start: 2022, end: 20230908
  2. CASODEX [Suspect]
     Active Substance: BICALUTAMIDE
     Indication: Androgen therapy
     Dosage: UNK UNK, UNKNOWN FREQ.
     Route: 065
     Dates: start: 201801, end: 20230908
  3. ABIRATERONE [Suspect]
     Active Substance: ABIRATERONE
     Indication: Androgen therapy
     Dosage: UNK UNK, UNKNOWN FREQ.
     Route: 065
     Dates: start: 201801, end: 20230908
  4. ZYTIGA [Suspect]
     Active Substance: ABIRATERONE ACETATE
     Indication: Androgen therapy
     Dosage: UNK UNK, UNKNOWN FREQ.
     Route: 065
     Dates: start: 201801, end: 20230908

REACTIONS (4)
  - Urinary retention [Recovered/Resolved]
  - Sleep disorder [Recovered/Resolved]
  - Pollakiuria [Recovered/Resolved]
  - Penile pain [Recovered/Resolved]
